FAERS Safety Report 9029030 (Version 1)
Quarter: 2013Q1

REPORT INFORMATION
  Report Type: Spontaneous
  Country: BR (occurrence: BR)
  Receive Date: 20130122
  Receipt Date: 20130122
  Transmission Date: 20140127
  Serious: Yes (Other)
  Sender: FDA-Public Use
  Company Number: PHHY2013BR005515

PATIENT
  Sex: Male

DRUGS (1)
  1. RITALIN [Suspect]

REACTIONS (3)
  - Speech disorder [Unknown]
  - Hypokinesia [Unknown]
  - Paraesthesia oral [Unknown]
